FAERS Safety Report 9078892 (Version 1)
Quarter: 2013Q1

REPORT INFORMATION
  Report Type: Report from Study
  Country: US (occurrence: US)
  Receive Date: 20130130
  Receipt Date: 20130130
  Transmission Date: 20140127
  Serious: No
  Sender: FDA-Public Use
  Company Number: US-ABBOTT-12P-163-0975385-00

PATIENT
  Age: 38 Year
  Sex: Female

DRUGS (12)
  1. HUMIRA [Suspect]
     Indication: CROHN^S DISEASE
     Dates: start: 20120615
  2. BENADRYL [Concomitant]
     Indication: RHINORRHOEA
  3. ASACOL [Concomitant]
     Indication: CROHN^S DISEASE
  4. HYDROCODONE [Concomitant]
     Indication: PAIN
     Dosage: 7.5/325
  5. PRILOSEC [Concomitant]
     Indication: GASTRIC DISORDER
  6. ANAFLEX [Concomitant]
     Indication: MUSCLE DISORDER
  7. LISINOPRIL [Concomitant]
     Indication: HYPERTENSION
  8. LASIX [Concomitant]
     Indication: JOINT SWELLING
  9. LASIX [Concomitant]
     Indication: OEDEMA PERIPHERAL
  10. POTASSIUM [Concomitant]
     Indication: PRODUCT USED FOR UNKNOWN INDICATION
  11. PROMETHAZINE Q 8 [Concomitant]
     Indication: NAUSEA
     Dosage: N/V
  12. PROMETHAZINE Q 8 [Concomitant]
     Indication: VOMITING

REACTIONS (2)
  - Incorrect dose administered [Not Recovered/Not Resolved]
  - Furuncle [Not Recovered/Not Resolved]
